FAERS Safety Report 24467196 (Version 1)
Quarter: 2024Q4

REPORT INFORMATION
  Report Type: Report from Study
  Country: US (occurrence: US)
  Receive Date: 20241018
  Receipt Date: 20241018
  Transmission Date: 20250115
  Serious: No
  Sender: ROCHE
  Company Number: US-ROCHE-3555433

PATIENT

DRUGS (1)
  1. XOLAIR [Suspect]
     Active Substance: OMALIZUMAB
     Indication: Skin burning sensation
     Route: 065

REACTIONS (4)
  - Panic attack [Unknown]
  - Histamine intolerance [Unknown]
  - Osteopenia [Unknown]
  - Off label use [Unknown]
